FAERS Safety Report 7438204-6 (Version None)
Quarter: 2011Q2

REPORT INFORMATION
  Report Type: 
  Country: None (occurrence: None)
  Receive Date: 20110426
  Receipt Date: 20100125
  Transmission Date: 20111010
  Serious: No
  Sender: FDA-Public Use
  Company Number: US-BAYER-201012363NA

PATIENT
  Age: 29 Year
  Sex: Female

DRUGS (2)
  1. PARAGARD T 380A [Suspect]
     Indication: CONTRACEPTION
     Dosage: UNK
     Dates: start: 20090615, end: 20100114
  2. YAZ [Suspect]
     Indication: ACNE
     Dosage: UNK
     Route: 048
     Dates: end: 20090901

REACTIONS (3)
  - MENSTRUATION DELAYED [None]
  - DEVICE EXPULSION [None]
  - METRORRHAGIA [None]
